FAERS Safety Report 6420299-X (Version None)
Quarter: 2009Q4

REPORT INFORMATION
  Report Type: 
  Country: None (occurrence: None)
  Receive Date: 20091029
  Receipt Date: 20091020
  Transmission Date: 20100525
  Serious: Yes (Other)
  Sender: FDA-Public Use
  Company Number: JP-PFIZER INC-2009287029

PATIENT

DRUGS (1)
  1. MEDROL [Suspect]
     Indication: IMMUNOSUPPRESSION
     Dosage: 6 MG/DAY

REACTIONS (1)
  - BLOOD GLUCOSE DECREASED [None]
